FAERS Safety Report 8819350 (Version 1)
Quarter: 2012Q4

REPORT INFORMATION
  Report Type: 
  Country: BR (occurrence: BR)
  Receive Date: 20121001
  Receipt Date: 20121001
  Transmission Date: 20130627
  Serious: Yes (Other)
  Sender: FDA-Public Use
  Company Number: BR-JNJFOC-20120910625

PATIENT
  Age: 85 Year
  Sex: Female
  Weight: 57 kg

DRUGS (5)
  1. REMINYL ER [Suspect]
     Indication: DEMENTIA ALZHEIMER^S TYPE
     Route: 048
     Dates: start: 2010
  2. ASPIRIN A [Concomitant]
     Indication: MEMORY IMPAIRMENT
     Route: 048
     Dates: start: 2010
  3. ASPIRIN A [Concomitant]
     Indication: ANGIOPATHY
     Route: 048
     Dates: start: 2010
  4. CHOLECALCIFEROL [Concomitant]
     Indication: PROPHYLAXIS
     Route: 048
     Dates: start: 2012
  5. CALCIUM AND VITAMIN D [Concomitant]
     Indication: PROPHYLAXIS
     Route: 048
     Dates: start: 2008

REACTIONS (8)
  - Salivary gland mass [Recovered/Resolved]
  - Urinary tract infection [Recovered/Resolved]
  - Osteoarthritis [Not Recovered/Not Resolved]
  - Gastritis [Unknown]
  - Drug prescribing error [Not Recovered/Not Resolved]
  - Medication error [Not Recovered/Not Resolved]
  - Blood glucose increased [Not Recovered/Not Resolved]
  - Blood cholesterol increased [Not Recovered/Not Resolved]
